FAERS Safety Report 7783882-5 (Version None)
Quarter: 2011Q3

REPORT INFORMATION
  Report Type: 
  Country: None (occurrence: None)
  Receive Date: 20110928
  Receipt Date: 20110920
  Transmission Date: 20111222
  Serious: Yes (Death)
  Sender: FDA-Public Use
  Company Number: US-GLAXOSMITHKLINE-A0945825A

PATIENT
  Sex: Female

DRUGS (6)
  1. LISINOPRIL [Concomitant]
  2. OMEPRAZOLE [Concomitant]
  3. SIMVASTATIN [Concomitant]
  4. METOPROLOL TARTRATE [Concomitant]
  5. ASPIRIN [Concomitant]
  6. TYKERB [Suspect]
     Indication: BREAST CANCER FEMALE
     Dosage: 1250MG PER DAY
     Route: 048
     Dates: start: 20100814, end: 20110901

REACTIONS (1)
  - DEATH [None]
